FAERS Safety Report 25241200 (Version 1)
Quarter: 2025Q2

REPORT INFORMATION
  Report Type: Spontaneous
  Country: US (occurrence: US)
  Receive Date: 20250425
  Receipt Date: 20250425
  Transmission Date: 20250716
  Serious: Yes (Other)
  Sender: ALKERMES
  Company Number: US-ALKERMES INC.-ALK-2025-001102

PATIENT
  Sex: Female

DRUGS (1)
  1. VIVITROL [Suspect]
     Active Substance: NALTREXONE
     Indication: Dependence
     Route: 030

REACTIONS (4)
  - Injection site injury [Unknown]
  - Streptococcal infection [Unknown]
  - Product administered at inappropriate site [Recovered/Resolved]
  - Self-medication [Recovered/Resolved]
